FAERS Safety Report 7622541-6 (Version None)
Quarter: 2011Q3

REPORT INFORMATION
  Report Type: 
  Country: None (occurrence: None)
  Receive Date: 20110719
  Receipt Date: 20110719
  Transmission Date: 20111222
  Serious: Yes (Disabling)
  Sender: FDA-Public Use
  Company Number: None

PATIENT
  Age: 60 Year
  Sex: Male
  Weight: 127.0072 kg

DRUGS (1)
  1. DICLOFENAC SODIUM [Suspect]
     Indication: NECK PAIN
     Dosage: 75 MG 1 TWICE A DAY PO
     Route: 048
     Dates: start: 20110609, end: 20110611

REACTIONS (4)
  - ERYTHEMA [None]
  - PRURITUS [None]
  - OEDEMA PERIPHERAL [None]
  - PAIN [None]
